FAERS Safety Report 6316742-7 (Version None)
Quarter: 2009Q3

REPORT INFORMATION
  Report Type: 
  Country: None (occurrence: None)
  Receive Date: 20090820
  Receipt Date: 20090811
  Transmission Date: 20100115
  Serious: Yes (Hospitalization, Other)
  Sender: FDA-Public Use
  Company Number: US-ELI_LILLY_AND_COMPANY-US200903000945

PATIENT
  Sex: Male

DRUGS (6)
  1. FORTEO [Suspect]
     Dosage: 20 UG, DAILY (1/D)
     Route: 058
     Dates: start: 20081001, end: 20090202
  2. FORTEO [Suspect]
     Dosage: 20 UG, DAILY (1/D)
  3. FORTEO [Suspect]
     Dosage: 20 UG, DAILY (1/D)
  4. VITAMIN D [Concomitant]
     Dosage: UNK, DAILY (1/D)
  5. MOBIC [Concomitant]
  6. FOSAMAX [Concomitant]

REACTIONS (10)
  - BACK PAIN [None]
  - BIOPSY BONE ABNORMAL [None]
  - DYSPNOEA [None]
  - FATIGUE [None]
  - HEADACHE [None]
  - MYALGIA [None]
  - NUCLEAR MAGNETIC RESONANCE IMAGING ABNORMAL [None]
  - PARATRACHEAL LYMPHADENOPATHY [None]
  - SPLENOMEGALY [None]
  - THROMBOCYTOPENIA [None]
